FAERS Safety Report 25658489 (Version 5)
Quarter: 2025Q3

REPORT INFORMATION
  Report Type: Spontaneous
  Country: US (occurrence: US)
  Receive Date: 20250808
  Receipt Date: 20250924
  Transmission Date: 20251021
  Serious: Yes (Other)
  Sender: BLUEPRINT MEDICINES
  Company Number: US-Blueprint Medicines Corporation-2025-AER-01713

PATIENT
  Age: 68 Year
  Sex: Female

DRUGS (1)
  1. AYVAKIT [Suspect]
     Active Substance: AVAPRITINIB
     Indication: Systemic mastocytosis
     Route: 048
     Dates: start: 20250723

REACTIONS (7)
  - Urinary retention [Recovering/Resolving]
  - Immunodeficiency [Unknown]
  - Nausea [Unknown]
  - Weight increased [Recovering/Resolving]
  - Malaise [Unknown]
  - Fungal infection [Unknown]
  - Adverse event [Unknown]

NARRATIVE: CASE EVENT DATE: 20250730
